FAERS Safety Report 7440051-6 (Version None)
Quarter: 2011Q2

REPORT INFORMATION
  Report Type: 
  Country: None (occurrence: None)
  Receive Date: 20110427
  Receipt Date: 20110315
  Transmission Date: 20111010
  Serious: Yes (Hospitalization, Other)
  Sender: FDA-Public Use
  Company Number: US-BAYER-201039251NA

PATIENT
  Age: 40 Year
  Sex: Female
  Weight: 86.168 kg

DRUGS (8)
  1. AMITRIPTYLINE [Concomitant]
     Dosage: 50 MG, QD
     Route: 048
  2. FLEXERIL [Concomitant]
     Indication: BACK PAIN
     Dosage: UNK
     Dates: start: 20080601
  3. AMITRIPTYLINE [Concomitant]
     Indication: MIGRAINE
     Dosage: 40 MG, QD
     Dates: start: 20061001
  4. SIMVASTATIN [Concomitant]
     Indication: BLOOD CHOLESTEROL ABNORMAL
     Dosage: 25 MG, QD
     Dates: start: 20061001
  5. YAZ [Suspect]
     Indication: ORAL CONTRACEPTION
     Route: 048
     Dates: start: 20070901, end: 20080101
  6. IMITREX [Concomitant]
     Indication: MIGRAINE
     Dosage: UNK
     Dates: start: 20061001
  7. SIMVASTATIN [Concomitant]
     Dosage: 20 MG, QD
     Route: 048
  8. PROPOXYPHENE HYDROCHLORIDE [Concomitant]
     Indication: BACK PAIN
     Dosage: UNK
     Dates: start: 20080601

REACTIONS (4)
  - CHEST PAIN [None]
  - PULMONARY EMBOLISM [None]
  - PAIN IN EXTREMITY [None]
  - DEEP VEIN THROMBOSIS [None]
